FAERS Safety Report 6505784-4 (Version None)
Quarter: 2009Q4

REPORT INFORMATION
  Report Type: 
  Country: None (occurrence: None)
  Receive Date: 20091217
  Receipt Date: 20091217
  Transmission Date: 20100525
  Serious: No
  Sender: FDA-Public Use
  Company Number: None

PATIENT
  Sex: Male
  Weight: 88.8 kg

DRUGS (3)
  1. CYTARABINE [Suspect]
     Dosage: 2884 MG
  2. DAUNORUBICIN [Suspect]
     Dosage: 412 MG
  3. TRETINOIN [Suspect]
     Dosage: 1700 MG

REACTIONS (4)
  - ABASIA [None]
  - MYOSITIS [None]
  - OEDEMA PERIPHERAL [None]
  - PAIN IN EXTREMITY [None]
